FAERS Safety Report 24983028 (Version 1)
Quarter: 2025Q1

REPORT INFORMATION
  Report Type: Report from Study
  Country: CO (occurrence: CO)
  Receive Date: 20250218
  Receipt Date: 20250218
  Transmission Date: 20250409
  Serious: Yes (Hospitalization)
  Sender: PFIZER
  Company Number: CO-PFIZER INC-PV202500016259

PATIENT
  Age: 88 Year
  Sex: Female
  Weight: 69 kg

DRUGS (3)
  1. TRASTUZUMAB [Suspect]
     Active Substance: TRASTUZUMAB
  2. DOCETAXEL [Suspect]
     Active Substance: DOCETAXEL
     Route: 042
  3. PERTUZUMAB [Suspect]
     Active Substance: PERTUZUMAB
     Route: 042

REACTIONS (3)
  - Angina pectoris [Recovered/Resolved]
  - Troponin increased [Recovered/Resolved]
  - Diarrhoea [Recovered/Resolved]

NARRATIVE: CASE EVENT DATE: 20220602
